FAERS Safety Report 9656627 (Version 1)
Quarter: 2013Q4

REPORT INFORMATION
  Report Type: Spontaneous
  Country: GB (occurrence: None)
  Receive Date: 20131028
  Receipt Date: 20131028
  Transmission Date: 20140711
  Serious: Yes (Hospitalization, Other)
  Sender: FDA-Public Use
  Company Number: KAD201310-001377

PATIENT
  Age: 41 Year
  Sex: Female
  Weight: 50 kg

DRUGS (7)
  1. RIBAVIRIN [Suspect]
     Indication: HEPATITIS C
     Route: 048
     Dates: start: 20130219
  2. INCIVO [Suspect]
     Indication: HEPATITIS C
     Route: 048
     Dates: start: 20130219, end: 20130416
  3. PEGINTERFERON ALFA-2A [Suspect]
     Indication: HEPATITIS C
     Route: 058
     Dates: start: 20130219
  4. ANUSOL (HYDROCORTISONE ACETATE, BENZYL BENZOATE, BISMUTH OXIDE, BISMUTH SUGALLATE, PERU BALSUM, ZINC OXIDE) [Concomitant]
  5. METOCLOPRAMIDE (METOCLOPRAMIDE) [Concomitant]
  6. TRAMADOL (TRAMADOL) [Concomitant]
  7. POTASSIUM BICARBONATE /POTASSIUM CHLORIDE (POTASSIUM BICARBONATE / POTASSIUM CHLORIDE) [Concomitant]

REACTIONS (11)
  - Anaemia [None]
  - Blood count abnormal [None]
  - Skin burning sensation [None]
  - Insomnia [None]
  - Pruritus [None]
  - Nausea [None]
  - Epistaxis [None]
  - Platelet count decreased [None]
  - Blood potassium decreased [None]
  - Restless legs syndrome [None]
  - Thirst [None]
